FAERS Safety Report 9109907 (Version 4)
Quarter: 2013Q3

REPORT INFORMATION
  Report Type: Report from Study
  Country: MX (occurrence: MX)
  Receive Date: 20130208
  Receipt Date: 20130913
  Transmission Date: 20140515
  Serious: Yes (Death, Life-Threatening, Hospitalization)
  Sender: FDA-Public Use
  Company Number: MX-BRISTOL-MYERS SQUIBB COMPANY-17300864

PATIENT
  Age: 70 Year
  Sex: Male
  Weight: 80 kg

DRUGS (4)
  1. CETUXIMAB [Suspect]
     Indication: SQUAMOUS CELL CARCINOMA OF HEAD AND NECK
     Dosage: 20JUL2012:20JUL2012: 400MG/M2 D1, 27JUL2012:27JUL2012: 250 MG/M2 D8
     Route: 042
     Dates: start: 20120720, end: 20120727
  2. CISPLATIN [Suspect]
     Indication: SQUAMOUS CELL CARCINOMA OF HEAD AND NECK
     Dosage: LAST DOSE 20JUL12
     Route: 042
     Dates: start: 20120720, end: 20120720
  3. 5-FLUOROURACIL [Suspect]
     Indication: SQUAMOUS CELL CARCINOMA OF HEAD AND NECK
     Dosage: D1-4?LAST DOSE 24JUL12
     Route: 042
     Dates: start: 20120720, end: 20120724
  4. SITAGLIPTIN PHOSPHATE + METFORMIN HCL [Concomitant]
     Indication: DIABETES MELLITUS
     Dates: start: 2004, end: 20120815

REACTIONS (3)
  - Respiratory failure [Fatal]
  - Aspiration [Fatal]
  - Post procedural haemorrhage [Not Recovered/Not Resolved]
